FAERS Safety Report 8771929 (Version 2)
Quarter: 2013Q1

REPORT INFORMATION
  Report Type: Report from Study
  Country: JP (occurrence: JP)
  Receive Date: 20120906
  Receipt Date: 20130115
  Transmission Date: 20140127
  Serious: Yes (Other)
  Sender: FDA-Public Use
  Company Number: JP-009507513-1207JPN000073

PATIENT
  Age: 59 Year
  Sex: Male
  Weight: 68 kg

DRUGS (8)
  1. PEGINTRON [Suspect]
     Indication: CHRONIC HEPATITIS C
     Dosage: 1.5 MICROGRAM PER KILOGRAM, QW
     Route: 058
     Dates: start: 20120502, end: 20120523
  2. REBETOL [Suspect]
     Indication: CHRONIC HEPATITIS C
     Dosage: 800 MG, QD
     Route: 048
     Dates: start: 20120502, end: 20120509
  3. REBETOL [Suspect]
     Dosage: 800 MG, QD
     Dates: start: 20120516, end: 20120523
  4. TELAVIC [Suspect]
     Indication: CHRONIC HEPATITIS C
     Dosage: 2250 MG, QD
     Route: 048
     Dates: start: 20120502, end: 20120509
  5. TELAVIC [Suspect]
     Dosage: 1500 MG, QD
     Route: 048
     Dates: start: 20120516, end: 20120519
  6. URSO [Concomitant]
     Indication: CHRONIC HEPATITIS C
     Dosage: 600 MG, QD
     Route: 048
  7. TALION (BEPOTASTINE BESYLATE) [Concomitant]
     Indication: PROPHYLAXIS
     Dosage: 10 MG, QD
     Route: 048
     Dates: start: 20120502, end: 20120523
  8. ALFAROL [Concomitant]
     Indication: CHRONIC HEPATITIS C
     Dosage: 1 MG, QD
     Route: 048
     Dates: start: 20120502, end: 20120523

REACTIONS (2)
  - Hyperuricaemia [Recovered/Resolved]
  - Renal impairment [Recovered/Resolved]
